FAERS Safety Report 6663627 (Version 3)
Quarter: 2014Q2

REPORT INFORMATION
  Report Type: Spontaneous
  Country: FR (occurrence: FR)
  Receive Date: 20080612
  Receipt Date: 20140507
  Transmission Date: 20141212
  Serious: Yes (Hospitalization)
  Sender: FDA-Public Use
  Company Number: FR-JNJFOC-20080600038

PATIENT
  Age: 91 Year
  Sex: Female

DRUGS (6)
  1. DUROGESIC [Suspect]
     Indication: PRODUCT USED FOR UNKNOWN INDICATION
     Route: 062
     Dates: end: 20071212
  2. ACUPAN [Interacting]
     Indication: PRODUCT USED FOR UNKNOWN INDICATION
     Route: 048
  3. AMLOR [Concomitant]
  4. PREVISCAN [Concomitant]
  5. INIPOMP [Concomitant]
  6. LEXOMIL [Concomitant]

REACTIONS (6)
  - Asthenia [Recovered/Resolved]
  - Apathy [Recovered/Resolved]
  - Incoherent [Recovered/Resolved]
  - Confusional state [Recovered/Resolved]
  - Urinary retention [Recovered/Resolved]
  - Drug interaction [Unknown]
